FAERS Safety Report 12569210 (Version 1)
Quarter: 2016Q3

REPORT INFORMATION
  Report Type: Spontaneous
  Country: US (occurrence: None)
  Receive Date: 20160718
  Receipt Date: 20160718
  Transmission Date: 20161109
  Serious: Yes (Hospitalization)
  Sender: FDA-Public Use
  Company Number: None

PATIENT
  Age: 82 Year
  Sex: Female

DRUGS (9)
  1. TRACLEER [Suspect]
     Active Substance: BOSENTAN
     Indication: HEART DISEASE CONGENITAL
     Route: 048
     Dates: start: 201501
  2. DILTIAZEM. [Concomitant]
     Active Substance: DILTIAZEM
  3. ALBUTEROL. [Concomitant]
     Active Substance: ALBUTEROL
  4. FAMOTIDINE. [Concomitant]
     Active Substance: FAMOTIDINE
  5. FUROSEMIDE. [Concomitant]
     Active Substance: FUROSEMIDE
  6. SILDENAFIL. [Concomitant]
     Active Substance: SILDENAFIL
  7. DIGOXIN. [Concomitant]
     Active Substance: DIGOXIN
  8. KCL [Concomitant]
     Active Substance: POTASSIUM CHLORIDE
  9. APIXABAN [Concomitant]
     Active Substance: APIXABAN

REACTIONS (3)
  - Right ventricular failure [None]
  - Oedema [None]
  - Pneumonia [None]

NARRATIVE: CASE EVENT DATE: 20160707
